FAERS Safety Report 4590074-X (Version None)
Quarter: 2005Q1

REPORT INFORMATION
  Report Type: 
  Country: None (occurrence: None)
  Receive Date: 20050217
  Receipt Date: 20050210
  Transmission Date: 20050727
  Serious: Yes (Other)
  Sender: FDA-Public Use
  Company Number: 2005028657

PATIENT
  Sex: Female

DRUGS (2)
  1. NEURONTIN [Suspect]
     Indication: ILL-DEFINED DISORDER
     Dosage: 30 MG
  2. CODEINE PHOSPHATE AND ACETAMINOPHEN [Concomitant]

REACTIONS (4)
  - BLOOD PRESSURE DIASTOLIC DECREASED [None]
  - OEDEMA MOUTH [None]
  - OROPHARYNGEAL SWELLING [None]
  - SWELLING FACE [None]
